FAERS Safety Report 6961402-2 (Version None)
Quarter: 2010Q3

REPORT INFORMATION
  Report Type: 
  Country: None (occurrence: None)
  Receive Date: 20100901
  Receipt Date: 20100819
  Transmission Date: 20110219
  Serious: Yes (Hospitalization)
  Sender: FDA-Public Use
  Company Number: PHHO2010US12795

PATIENT
  Sex: Female
  Weight: 54.4 kg

DRUGS (3)
  1. AFINITOR [Suspect]
     Indication: NEOPLASM MALIGNANT
     Dosage: 5 MG DAILY
     Route: 048
     Dates: start: 20100623, end: 20100816
  2. ATIVAN [Concomitant]
  3. EFFEXOR [Concomitant]

REACTIONS (4)
  - ARTHRALGIA [None]
  - ERYTHEMA MULTIFORME [None]
  - OEDEMA [None]
  - URTICARIA [None]
